FAERS Safety Report 18361266 (Version 1)
Quarter: 2020Q4

REPORT INFORMATION
  Report Type: Spontaneous
  Country: FR (occurrence: FR)
  Receive Date: 20201008
  Receipt Date: 20201008
  Transmission Date: 20210114
  Serious: Yes (Hospitalization)
  Sender: FDA-Public Use
  Company Number: FR-MYLANLABS-2020M1084492

PATIENT
  Age: 52 Year
  Sex: Male
  Weight: 77 kg

DRUGS (11)
  1. VELCADE [Suspect]
     Active Substance: BORTEZOMIB
     Indication: PLASMA CELL MYELOMA
     Dosage: 1.3 MILLIGRAM/SQ. METER, CYCLE
     Route: 042
     Dates: start: 20200722, end: 20200901
  2. RISPERDAL [Suspect]
     Active Substance: RISPERIDONE
     Indication: AGGRESSION
     Dosage: 2 MILLIGRAM, QD
     Route: 048
     Dates: start: 20200904, end: 20200907
  3. VALACICLOVIR [Suspect]
     Active Substance: VALACYCLOVIR HYDROCHLORIDE
     Indication: PROPHYLAXIS
     Dosage: 1000 MILLIGRAM, QD
     Route: 048
     Dates: start: 20200722, end: 20200907
  4. BACTRIM [Suspect]
     Active Substance: SULFAMETHOXAZOLE\TRIMETHOPRIM
     Indication: PROPHYLAXIS
     Dosage: 3 DOSAGE FORM, QW
     Route: 048
     Dates: start: 20200722, end: 20200908
  5. LEDERFOLINE [Concomitant]
     Active Substance: LEUCOVORIN CALCIUM
  6. REVLIMID [Suspect]
     Active Substance: LENALIDOMIDE
     Indication: PLASMA CELL MYELOMA
     Dosage: 350 MILLIGRAM, CYCLE
     Route: 048
     Dates: start: 20200722, end: 20200906
  7. XARELTO [Concomitant]
     Active Substance: RIVAROXABAN
  8. ESOMEPRAZOLE. [Concomitant]
     Active Substance: ESOMEPRAZOLE MAGNESIUM
  9. BROMAZEPAM [Concomitant]
     Active Substance: BROMAZEPAM
  10. NEBIVOLOL HYDROCHLORIDE [Concomitant]
     Active Substance: NEBIVOLOL HYDROCHLORIDE
  11. DEXAMETHASONE. [Suspect]
     Active Substance: DEXAMETHASONE
     Indication: PLASMA CELL MYELOMA
     Dosage: 20 MILLIGRAM, QD
     Route: 048
     Dates: start: 20200722, end: 20200904

REACTIONS (3)
  - Agitation [Not Recovered/Not Resolved]
  - Brief psychotic disorder with marked stressors [Not Recovered/Not Resolved]
  - Hallucination, auditory [Not Recovered/Not Resolved]

NARRATIVE: CASE EVENT DATE: 20200901
